FAERS Safety Report 9320980 (Version 2)
Quarter: 2013Q3

REPORT INFORMATION
  Report Type: Spontaneous
  Country: US (occurrence: US)
  Receive Date: 20130531
  Receipt Date: 20130722
  Transmission Date: 20140515
  Serious: No
  Sender: FDA-Public Use
  Company Number: US-PFIZER INC-2013162923

PATIENT
  Age: 64 Year
  Sex: Female

DRUGS (2)
  1. SUTENT [Suspect]
     Indication: PANCREATIC CARCINOMA
     Dosage: 25 MG, 4 WKS ON 2 WK OFF
     Route: 048
     Dates: start: 20120703
  2. SUTENT [Suspect]
     Indication: SOFT TISSUE CANCER

REACTIONS (3)
  - Tongue discolouration [Recovered/Resolved]
  - Neurodermatitis [Recovered/Resolved]
  - Rash [Unknown]
